FAERS Safety Report 6998073-5 (Version None)
Quarter: 2010Q3

REPORT INFORMATION
  Report Type: 
  Country: None (occurrence: None)
  Receive Date: 20100920
  Receipt Date: 20070830
  Transmission Date: 20110219
  Serious: Yes (Other)
  Sender: FDA-Public Use
  Company Number: US-ASTRAZENECA-2006UW08401

PATIENT
  Sex: Male
  Weight: 81.1 kg

DRUGS (5)
  1. SEROQUEL [Suspect]
     Indication: MENTAL DISORDER
     Dosage: 25-300 MG
     Route: 048
     Dates: start: 20041117, end: 20060926
  2. LEXAPRO [Concomitant]
     Dates: start: 20050622
  3. LEXAPRO [Concomitant]
     Dosage: 10-20 MG DAILY
     Route: 048
     Dates: start: 20060323
  4. ZOLOFT [Concomitant]
     Dosage: 50-100 MG, EVERYDAY
     Dates: start: 20041117
  5. RISPERDAL [Concomitant]
     Dosage: 2-4 MG
     Route: 048
     Dates: start: 20060323

REACTIONS (2)
  - HYPERGLYCAEMIA [None]
  - TARDIVE DYSKINESIA [None]
